FAERS Safety Report 24293417 (Version 1)
Quarter: 2024Q3

REPORT INFORMATION
  Report Type: Spontaneous
  Country: US (occurrence: US)
  Receive Date: 20240906
  Receipt Date: 20240906
  Transmission Date: 20241016
  Serious: Yes (Hospitalization)
  Sender: NOVARTIS
  Company Number: US-002147023-NVSC2024US176850

PATIENT

DRUGS (1)
  1. ADAKVEO [Suspect]
     Active Substance: CRIZANLIZUMAB-TMCA
     Indication: Product used for unknown indication
     Dosage: UNK (3 VIALS), 10ML SDV
     Route: 065

REACTIONS (2)
  - Sickle cell anaemia with crisis [Unknown]
  - Back pain [Unknown]
